FAERS Safety Report 13988877 (Version 3)
Quarter: 2020Q3

REPORT INFORMATION
  Report Type: Spontaneous
  Country: CA (occurrence: CA)
  Receive Date: 20170919
  Receipt Date: 20200921
  Transmission Date: 20201102
  Serious: Yes (Life-Threatening, Other)
  Sender: FDA-Public Use
  Company Number: CA-TEVA-807464ACC

PATIENT
  Age: 8 Year
  Sex: Male
  Weight: 28 kg

DRUGS (3)
  1. ONDANSETRON [Concomitant]
     Active Substance: ONDANSETRON
  2. ETOPOSIDE INJECTION [Suspect]
     Active Substance: ETOPOSIDE
     Indication: BRAIN NEOPLASM
     Dosage: ONCE
     Route: 065
  3. ETOPOSIDE INJECTION [Suspect]
     Active Substance: ETOPOSIDE
     Indication: NEOPLASM MALIGNANT
     Dosage: 104 MILLIGRAM DAILY;
     Route: 042

REACTIONS (6)
  - Eye swelling [Unknown]
  - Product use in unapproved indication [Unknown]
  - Dyspnoea [Unknown]
  - Flushing [Unknown]
  - Lip swelling [Unknown]
  - Periorbital swelling [Unknown]
